FAERS Safety Report 5574475-9 (Version None)
Quarter: 2007Q4

REPORT INFORMATION
  Report Type: 
  Country: None (occurrence: None)
  Receive Date: 20071227
  Receipt Date: 20071218
  Transmission Date: 20080405
  Serious: Yes (Other)
  Sender: FDA-Public Use
  Company Number: IT-ROCHE-537381

PATIENT
  Age: 9 Year
  Sex: Female

DRUGS (1)
  1. ROCEPHIN [Suspect]
     Indication: CYSTITIS
     Dosage: FORM VIAL
     Route: 030
     Dates: start: 20071122, end: 20071124

REACTIONS (3)
  - ABDOMINAL PAIN [None]
  - CONJUNCTIVAL HYPERAEMIA [None]
  - DIARRHOEA [None]
